FAERS Safety Report 8012944-2 (Version None)
Quarter: 2011Q4

REPORT INFORMATION
  Report Type: 
  Country: None (occurrence: None)
  Receive Date: 20111229
  Receipt Date: 20111216
  Transmission Date: 20120403
  Serious: Yes (Hospitalization)
  Sender: FDA-Public Use
  Company Number: JP-UCBSA-047952

PATIENT
  Age: 83 Year
  Sex: Female

DRUGS (6)
  1. NIKORANMART [Suspect]
     Indication: ANGINA PECTORIS
     Route: 048
     Dates: start: 20111027
  2. VANCOMYCIN HYCHLORIDE [Suspect]
     Indication: STAPHYLOCOCCAL INFECTION
     Route: 042
     Dates: start: 20111025, end: 20111027
  3. OLOPATADINE HCL [Concomitant]
     Indication: PRURITUS GENERALISED
     Route: 048
     Dates: start: 20111024, end: 20111026
  4. CEFAZOLIN SODIUM [Suspect]
     Dosage: DOSAGE FORM: OPOW
     Route: 048
     Dates: start: 20111027, end: 20111105
  5. XYZAL [Suspect]
     Indication: PRURITUS GENERALISED
     Route: 048
     Dates: start: 20111026, end: 20111028
  6. MAXIPIME [Suspect]
     Indication: ESCHERICHIA INFECTION
     Route: 042
     Dates: start: 20111022, end: 20111027

REACTIONS (5)
  - RENAL FAILURE [None]
  - METABOLIC ENCEPHALOPATHY [None]
  - ALTERED STATE OF CONSCIOUSNESS [None]
  - COMMUNICATION DISORDER [None]
  - APHASIA [None]
